FAERS Safety Report 12845398 (Version 1)
Quarter: 2016Q4

REPORT INFORMATION
  Report Type: Spontaneous
  Country: US (occurrence: US)
  Receive Date: 20161013
  Receipt Date: 20161013
  Transmission Date: 20170207
  Serious: No
  Sender: FDA-Public Use
  Company Number: US-JAZZ-2016-US-013623

PATIENT
  Age: 46 Year
  Sex: Female

DRUGS (9)
  1. VISTARIL [Concomitant]
     Active Substance: HYDROXYZINE PAMOATE
  2. HYDROCODONE [Concomitant]
     Active Substance: HYDROCODONE
  3. CITALOPRAM [Concomitant]
     Active Substance: CITALOPRAM HYDROBROMIDE
  4. LEXAPRO [Concomitant]
     Active Substance: ESCITALOPRAM OXALATE
  5. XYREM [Suspect]
     Active Substance: SODIUM OXYBATE
     Indication: FIBROMYALGIA
     Dosage: 2.25 G, BID
     Route: 048
     Dates: start: 200508, end: 200603
  6. XYREM [Suspect]
     Active Substance: SODIUM OXYBATE
     Indication: INSOMNIA
     Dosage: 3 G, BID
     Route: 048
     Dates: start: 200603
  7. METRONIDAZOLE. [Concomitant]
     Active Substance: METRONIDAZOLE
  8. IBUPROFEN. [Concomitant]
     Active Substance: IBUPROFEN
  9. IRON [Concomitant]
     Active Substance: IRON

REACTIONS (3)
  - Pre-existing condition improved [Unknown]
  - Therapeutic response unexpected [Unknown]
  - Oral surgery [Unknown]

NARRATIVE: CASE EVENT DATE: 20160719
